FAERS Safety Report 13672832 (Version 2)
Quarter: 2017Q2

REPORT INFORMATION
  Report Type: Spontaneous
  Country: DK (occurrence: DK)
  Receive Date: 20170621
  Receipt Date: 20170627
  Transmission Date: 20170830
  Serious: Yes (Other)
  Sender: FDA-Public Use
  Company Number: DK-PFIZER INC-2017265521

PATIENT
  Age: 47 Year
  Sex: Male
  Weight: 117 kg

DRUGS (1)
  1. ZELDOX [Suspect]
     Active Substance: ZIPRASIDONE
     Indication: SCHIZOPHRENIA
     Dosage: 160 MG PER 24 HOUR
     Dates: start: 2006, end: 2011

REACTIONS (1)
  - Strabismus [Recovering/Resolving]
